FAERS Safety Report 20623950 (Version 1)
Quarter: 2022Q1

REPORT INFORMATION
  Report Type: Spontaneous
  Country: US (occurrence: US)
  Receive Date: 20220322
  Receipt Date: 20220322
  Transmission Date: 20220423
  Serious: No
  Sender: FDA-Public Use
  Company Number: US-Vifor (International) Inc.-VIT-2022-01317

PATIENT
  Age: 70 Year
  Sex: Male

DRUGS (20)
  1. VELTASSA [Suspect]
     Active Substance: PATIROMER
     Indication: Hyperkalaemia
     Dosage: DISSOLVE CONTENTS OF 1 PACKET INTO 1/3 CUP OF WATER AND DRINK FULL?AMOUNT ONCE DAILY AS DIRECTED
     Route: 048
     Dates: start: 20211104
  2. ALLOPURINOL [Concomitant]
     Active Substance: ALLOPURINOL
  3. ASPIRIN [Concomitant]
     Active Substance: ASPIRIN
  4. GLYBURIDE [Concomitant]
     Active Substance: GLYBURIDE
  5. HYDRALAZINE [Concomitant]
     Active Substance: HYDRALAZINE HYDROCHLORIDE
  6. HYDRALAZINE [Concomitant]
     Active Substance: HYDRALAZINE HYDROCHLORIDE
  7. ISOSORBIDE MONONITRATE [Concomitant]
     Active Substance: ISOSORBIDE MONONITRATE
  8. JANUVIA [Concomitant]
     Active Substance: SITAGLIPTIN PHOSPHATE
  9. KAYEXALATE [Concomitant]
     Active Substance: SODIUM POLYSTYRENE SULFONATE
  10. KRILL OIL [Concomitant]
     Active Substance: DIETARY SUPPLEMENT\KRILL OIL
  11. LANTUS SOLOS [Concomitant]
     Dosage: INJ 100/ML
  12. METOPROL TAR [Concomitant]
  13. MULTIVIT/FL [Concomitant]
  14. MULTIVIT/FL [Concomitant]
     Dosage: ADULTS
  15. ROSUVASTATIN [Concomitant]
     Active Substance: ROSUVASTATIN
  16. ROSUVASTATIN [Concomitant]
     Active Substance: ROSUVASTATIN
  17. VITAMIN D [Concomitant]
     Active Substance: VITAMIN D NOS
     Dosage: 5000 UNT
  18. ASPIRIN [Concomitant]
     Active Substance: ASPIRIN
  19. COENZYME Q10 [Concomitant]
     Active Substance: DIETARY SUPPLEMENT\UBIDECARENONE
     Dosage: CAP 100MG TR
  20. COENZYME Q10 [Concomitant]
     Active Substance: DIETARY SUPPLEMENT\UBIDECARENONE
     Dosage: 100 MG

REACTIONS (3)
  - Product confusion [Unknown]
  - Product dose omission issue [Unknown]
  - No adverse event [Unknown]
